FAERS Safety Report 23796029 (Version 1)
Quarter: 2024Q2

REPORT INFORMATION
  Report Type: Report from Study
  Country: BE (occurrence: BE)
  Receive Date: 20240429
  Receipt Date: 20240429
  Transmission Date: 20240716
  Serious: Yes (Hospitalization)
  Sender: FDA-Public Use
  Company Number: BE-ABBVIE-5732184

PATIENT
  Age: 80 Year
  Sex: Male
  Weight: 87 kg

DRUGS (12)
  1. CARBIDOPA\LEVODOPA [Suspect]
     Active Substance: CARBIDOPA\LEVODOPA
     Indication: Parkinson^s disease
     Route: 050
     Dates: start: 20170313
  2. CARBIDOPA\LEVODOPA [Suspect]
     Active Substance: CARBIDOPA\LEVODOPA
     Dosage: MD: 4.5ML, CD: 3.7ML/H, ED: 2.80ML, CND: 2.5ML/H DURING 24 HOURS
     Route: 050
     Dates: start: 20230920, end: 20230920
  3. VESICARE [Concomitant]
     Active Substance: SOLIFENACIN SUCCINATE
     Indication: Product used for unknown indication
     Dosage: FREQUENCY TEXT: AT 07:00, 19:00 HOUR
  4. STALEVO [Concomitant]
     Active Substance: CARBIDOPA\ENTACAPONE\LEVODOPA
     Indication: Product used for unknown indication
     Dosage: FORM STRENGTH: 100 MG?FREQUENCY TEXT: AT 16:00, 19:00 HOUR
  5. STALEVO [Concomitant]
     Active Substance: CARBIDOPA\ENTACAPONE\LEVODOPA
     Indication: Product used for unknown indication
     Dosage: FORM STRENGTH: 150 MG?FREQUENCY TEXT: AT 07:00, 10:00, 13:00 HOUR
  6. TAMSULOSIN [Concomitant]
     Active Substance: TAMSULOSIN
     Indication: Product used for unknown indication
     Dosage: FREQUENCY TEXT: AT 10:00 HOUR?FORM STRENGTH: 0.4 MG
  7. SYMMETREL [Concomitant]
     Active Substance: AMANTADINE HYDROCHLORIDE
     Indication: Product used for unknown indication
     Dosage: FORM STRENGTH: 100 MG?FREQUENCY TEXT: AT 10:00 HOUR
  8. DAFLON [Concomitant]
     Indication: Product used for unknown indication
     Dosage: FORM STRENGTH: 500 MG?FREQUENCY TEXT: AT 07:00, 19:00 HOUR
  9. AZILECT [Concomitant]
     Active Substance: RASAGILINE MESYLATE
     Indication: Product used for unknown indication
     Dosage: FREQUENCY TEXT: AT 07:00 HOUR?FORM STRENGTH: 1  MG
  10. REQUIP [Concomitant]
     Active Substance: ROPINIROLE HYDROCHLORIDE
     Indication: Product used for unknown indication
     Dosage: FORM STRENGTH: 2 MG?FREQUENCY TEXT: AT 07:00 HOUR
  11. REQUIP [Concomitant]
     Active Substance: ROPINIROLE HYDROCHLORIDE
     Indication: Product used for unknown indication
     Dosage: FORM STRENGTH: 4 MG?FREQUENCY TEXT: AT 07:00 HOUR
  12. BENSERAZIDE\LEVODOPA [Concomitant]
     Active Substance: BENSERAZIDE\LEVODOPA
     Indication: Product used for unknown indication
     Dosage: FORM STRENGTH:  125 MG?FREQUENCY TEXT: AT 06:00 HOUR

REACTIONS (2)
  - Unresponsive to stimuli [Unknown]
  - Device dislocation [Unknown]

NARRATIVE: CASE EVENT DATE: 20240401
